FAERS Safety Report 7164537-7 (Version None)
Quarter: 2010Q4

REPORT INFORMATION
  Report Type: 
  Country: None (occurrence: None)
  Receive Date: 20101215
  Receipt Date: 20101019
  Transmission Date: 20110411
  Serious: No
  Sender: FDA-Public Use
  Company Number: US-ASTRAZENECA-2010SE40901

PATIENT
  Age: 788 Month
  Sex: Male

DRUGS (1)
  1. CRESTOR [Suspect]
     Indication: POST PROCEDURAL COMPLICATION
     Route: 048

REACTIONS (2)
  - AORTIC DILATATION [None]
  - HEART VALVE INCOMPETENCE [None]
